FAERS Safety Report 9664158 (Version 1)
Quarter: 2013Q4

REPORT INFORMATION
  Report Type: Report from Study
  Country: KZ (occurrence: KZ)
  Receive Date: 20131101
  Receipt Date: 20131101
  Transmission Date: 20140711
  Serious: Yes (Other)
  Sender: FDA-Public Use
  Company Number: KZ-VERTEX PHARMACEUTICALS INC-2013-010765

PATIENT
  Sex: Male
  Weight: 90 kg

DRUGS (3)
  1. VX-950 (TELAPREVIR) [Suspect]
     Indication: CHRONIC HEPATITIS C
     Dosage: UNK
  2. RIBAVIRIN [Concomitant]
     Indication: CHRONIC HEPATITIS C
     Dosage: UNK
     Route: 048
  3. PEGINTERFERON ALFA [Concomitant]
     Indication: CHRONIC HEPATITIS C
     Dosage: UNK
     Route: 058

REACTIONS (4)
  - Dermatitis atopic [Not Recovered/Not Resolved]
  - Pulse abnormal [Not Recovered/Not Resolved]
  - Fatigue [Not Recovered/Not Resolved]
  - Fatigue [Not Recovered/Not Resolved]
